FAERS Safety Report 7999806 (Version 2)
Quarter: 2014Q2

REPORT INFORMATION
  Report Type: Spontaneous
  Country: US (occurrence: US)
  Receive Date: 20110606
  Receipt Date: 20140625
  Transmission Date: 20141212
  Serious: Yes (Hospitalization)
  Sender: FDA-Public Use
  Company Number: US-ASTRAZENECA-2010SE51313

PATIENT
  Age: 28508 Day
  Sex: Male

DRUGS (4)
  1. ATACAND HTC [Suspect]
     Indication: BLOOD PRESSURE ABNORMAL
     Dosage: 32/SOMETHING ONCE A DAY
     Route: 048
     Dates: end: 20140605
  2. NEXIUM [Suspect]
     Route: 048
  3. NORVASC [Concomitant]
     Indication: BLOOD PRESSURE ABNORMAL
     Dosage: GENERIC
  4. UNSPECIFIED BLOOD THINNER [Concomitant]

REACTIONS (4)
  - Tobacco poisoning [Unknown]
  - Heart rate irregular [Unknown]
  - Malaise [Unknown]
  - Drug dose omission [Not Recovered/Not Resolved]
